FAERS Safety Report 5325324-5 (Version None)
Quarter: 2007Q2

REPORT INFORMATION
  Report Type: 
  Country: None (occurrence: None)
  Receive Date: 20070509
  Receipt Date: 20070424
  Transmission Date: 20071010
  Serious: Yes (Other)
  Sender: FDA-Public Use
  Company Number: GXKR2007GB03742

PATIENT
  Age: 12 Year
  Sex: Male

DRUGS (2)
  1. CEFTRIAXONE [Suspect]
     Dosage: 2 G, INTRAVENOUS
     Route: 042
     Dates: start: 20061209, end: 20070309
  2. TEICOPLANIN (TEICOPLANIN) [Concomitant]

REACTIONS (2)
  - PAIN [None]
  - PANCREATITIS [None]
